FAERS Safety Report 7251723 (Version 2)
Quarter: 2013Q2

REPORT INFORMATION
  Report Type: Report from Study
  Country: US (occurrence: US)
  Receive Date: 20100121
  Receipt Date: 20130429
  Transmission Date: 20140414
  Serious: Yes (Hospitalization)
  Sender: FDA-Public Use
  Company Number: US-RB-000968-10

PATIENT
  Age: 57 Year
  Sex: Male

DRUGS (2)
  1. SUBOXONE [Suspect]
     Indication: DRUG DEPENDENCE
     Route: 060
     Dates: start: 2007, end: 20070515
  2. SUBOXONE [Suspect]
     Route: 060
     Dates: start: 200706, end: 2009

REACTIONS (5)
  - Myocardial infarction [Recovered/Resolved]
  - Heart injury [Not Recovered/Not Resolved]
  - Pain [Recovered/Resolved]
  - Anxiety [Recovered/Resolved]
  - Dyspepsia [Unknown]
